FAERS Safety Report 4530589-3 (Version None)
Quarter: 2004Q4

REPORT INFORMATION
  Report Type: 
  Country: None (occurrence: None)
  Receive Date: 20041217
  Receipt Date: 20041217
  Transmission Date: 20050328
  Serious: Yes (Hospitalization)
  Sender: FDA-Public Use
  Company Number: None

PATIENT
  Age: 57 Year
  Sex: Female
  Weight: 70.1261 kg

DRUGS (4)
  1. DOXORUBICIN HYDROCHLORIDE [Suspect]
     Indication: HODGKIN'S DISEASE
     Dosage: 25 MG/M2 IV
     Route: 042
     Dates: start: 20041116, end: 20041130
  2. VINBLASTINE SULFATE [Suspect]
     Indication: HODGKIN'S DISEASE
     Dosage: 6 MG/M2 IV
     Route: 042
     Dates: start: 20041130, end: 20041130
  3. BLEOMYCIN [Suspect]
     Dosage: 10 U/M2 IV
     Route: 042
     Dates: start: 20041116, end: 20041130
  4. DTIC-DOME [Suspect]
     Dosage: 375 MG/M2 IV
     Route: 042
     Dates: start: 20041130, end: 20041130

REACTIONS (2)
  - ASTHENIA [None]
  - HYPONATRAEMIA [None]
